FAERS Safety Report 21924409 (Version 1)
Quarter: 2023Q1

REPORT INFORMATION
  Report Type: Spontaneous
  Country: US (occurrence: US)
  Receive Date: 20230130
  Receipt Date: 20230130
  Transmission Date: 20230417
  Serious: Yes (Hospitalization, Other)
  Sender: FDA-Public Use
  Company Number: US-MLMSERVICE-20230113-4040753-1

PATIENT
  Age: 34 Year
  Sex: Female
  Weight: 75 kg

DRUGS (1)
  1. BUPIVACAINE HYDROCHLORIDE [Suspect]
     Active Substance: BUPIVACAINE HYDROCHLORIDE
     Indication: Transversus abdominis plane block
     Dosage: 40 MILLILITER, 1 TOTAL (INJECTED IN 5-ML INCREMENTS. THE SAME PROCEDURE WAS REPEATED ON THE OPPOSITE
     Route: 065

REACTIONS (2)
  - Brachial plexopathy [Recovered/Resolved]
  - Horner^s syndrome [Recovered/Resolved]
